FAERS Safety Report 8446501-0 (Version None)
Quarter: 2012Q2

REPORT INFORMATION
  Report Type: 
  Country: None (occurrence: None)
  Receive Date: 20120618
  Receipt Date: 20120322
  Transmission Date: 20120825
  Serious: Yes (Other)
  Sender: FDA-Public Use
  Company Number: US-TEVA-335301USA

PATIENT
  Sex: Female

DRUGS (1)
  1. ACTIQ [Suspect]

REACTIONS (2)
  - PAIN [None]
  - WITHDRAWAL SYNDROME [None]
